FAERS Safety Report 6737801-0 (Version None)
Quarter: 2010Q2

REPORT INFORMATION
  Report Type: 
  Country: None (occurrence: None)
  Receive Date: 20100524
  Receipt Date: 20100517
  Transmission Date: 20101027
  Serious: Yes (Other)
  Sender: FDA-Public Use
  Company Number: US-BAYER-200923187NA

PATIENT
  Age: 51 Year
  Sex: Female
  Weight: 69 kg

DRUGS (13)
  1. MAGNEVIST [Suspect]
     Indication: NUCLEAR MAGNETIC RESONANCE IMAGING ABDOMINAL
     Dosage: AS USED: 13 ML
     Route: 042
     Dates: start: 19990421, end: 19990421
  2. OMNISCAN [Suspect]
     Indication: DRUG USE FOR UNKNOWN INDICATION
  3. OPTIMARK [Suspect]
     Indication: DRUG USE FOR UNKNOWN INDICATION
  4. MULTIHANCE [Suspect]
     Indication: DRUG USE FOR UNKNOWN INDICATION
  5. PROHANCE [Suspect]
     Indication: DRUG USE FOR UNKNOWN INDICATION
  6. LEVOXYL [Concomitant]
  7. VITAMIN D [Concomitant]
  8. CALCIUM [Concomitant]
  9. FLUOXETINE [Concomitant]
  10. PREDNISONE TAB [Concomitant]
  11. FERROUS SULFATE TAB [Concomitant]
  12. FOSAMAX [Concomitant]
  13. OXILAN-300 [Concomitant]
     Indication: COMPUTERISED TOMOGRAM ABDOMEN
     Dosage: AS USED: 100 ML
     Dates: start: 19990319, end: 19990319

REACTIONS (27)
  - BURNING SENSATION [None]
  - CONTRAST MEDIA ALLERGY [None]
  - DEFORMITY [None]
  - FIBROSIS [None]
  - GENERAL PHYSICAL HEALTH DETERIORATION [None]
  - JOINT CONTRACTURE [None]
  - JOINT RANGE OF MOTION DECREASED [None]
  - JOINT STIFFNESS [None]
  - JOINT SWELLING [None]
  - MOBILITY DECREASED [None]
  - MUSCLE TIGHTNESS [None]
  - NEPHROGENIC SYSTEMIC FIBROSIS [None]
  - OEDEMA PERIPHERAL [None]
  - PAIN [None]
  - PAIN IN EXTREMITY [None]
  - PEAU D'ORANGE [None]
  - PIGMENTATION DISORDER [None]
  - PRURITUS [None]
  - SCAR [None]
  - SKIN DISORDER [None]
  - SKIN FIBROSIS [None]
  - SKIN HYPERPIGMENTATION [None]
  - SKIN HYPERTROPHY [None]
  - SKIN INDURATION [None]
  - SKIN PLAQUE [None]
  - SKIN TIGHTNESS [None]
  - URTICARIA [None]
